FAERS Safety Report 6417024-5 (Version None)
Quarter: 2009Q4

REPORT INFORMATION
  Report Type: 
  Country: None (occurrence: None)
  Receive Date: 20091026
  Receipt Date: 20091013
  Transmission Date: 20100525
  Serious: Yes (Hospitalization)
  Sender: FDA-Public Use
  Company Number: 2009-03635

PATIENT
  Age: 71 Year
  Sex: Female
  Weight: 57 kg

DRUGS (10)
  1. VELCADE [Suspect]
     Indication: MULTIPLE MYELOMA
     Dosage: 21. MG, SUBCUTANEOUS
     Route: 058
     Dates: start: 20090623, end: 20090922
  2. HALOPERIDOL [Concomitant]
  3. CLODRONATE DISODIUM (CLODRONATE DISODIUM) [Concomitant]
  4. DORZOLAMIDE (DORZOLAMIDE) EYE DROPS [Concomitant]
  5. BIMATOPROST (BIMATOPROST) EYE DROPS [Concomitant]
  6. LANSOPRAZOLE [Concomitant]
  7. OXYCONTIN [Concomitant]
  8. ACYCLOVIR [Concomitant]
  9. PREMARIN [Concomitant]
  10. PARACETAMOL (PARACETAMOL) [Concomitant]

REACTIONS (4)
  - IMPAIRED HEALING [None]
  - PAIN IN EXTREMITY [None]
  - POST PROCEDURAL HAEMORRHAGE [None]
  - VULVAL ULCERATION [None]
